FAERS Safety Report 10020730 (Version 1)
Quarter: 2014Q1

REPORT INFORMATION
  Report Type: Spontaneous
  Country: US (occurrence: US)
  Receive Date: 20140319
  Receipt Date: 20140319
  Transmission Date: 20141002
  Serious: No
  Sender: FDA-Public Use
  Company Number: US-DRREDDYS-USA/USA/13/0030111

PATIENT
  Age: 67 Year
  Sex: Female

DRUGS (1)
  1. LAMOTRIGINE TABLETS [Suspect]
     Indication: DEPRESSION
     Dosage: 2 AND HALF TABLETS DAILY
     Route: 048

REACTIONS (1)
  - Feeling abnormal [Not Recovered/Not Resolved]
